FAERS Safety Report 6806317-5 (Version None)
Quarter: 2010Q2

REPORT INFORMATION
  Report Type: 
  Country: None (occurrence: None)
  Receive Date: 20100629
  Receipt Date: 20080219
  Transmission Date: 20101027
  Serious: Yes (Other)
  Sender: FDA-Public Use
  Company Number: US-PFIZER INC-2008000285

PATIENT
  Sex: Male
  Weight: 81.818 kg

DRUGS (3)
  1. VIAGRA [Suspect]
     Indication: ERECTILE DYSFUNCTION
     Dosage: ONCE PER MONTH TO TWICE PER WEEK
     Dates: start: 20050101, end: 20071201
  2. TYLENOL [Concomitant]
  3. SODIUM FLUORIDE [Concomitant]

REACTIONS (4)
  - DEAFNESS [None]
  - EAR DISCOMFORT [None]
  - HYPOACUSIS [None]
  - TINNITUS [None]
